FAERS Safety Report 6803382-6 (Version None)
Quarter: 2010Q2

REPORT INFORMATION
  Report Type: 
  Country: None (occurrence: None)
  Receive Date: 20100628
  Receipt Date: 20100617
  Transmission Date: 20101027
  Serious: Yes (Other)
  Sender: FDA-Public Use
  Company Number: US-PFIZER INC-2010076680

PATIENT
  Sex: Female
  Weight: 63.492 kg

DRUGS (8)
  1. TOVIAZ [Suspect]
     Indication: HYPERTONIC BLADDER
     Dosage: UNK MG, DAILY
     Route: 048
     Dates: start: 20100301
  2. TOVIAZ [Suspect]
     Dosage: 8 MG, 1X/DAY
  3. LEVOXYL [Concomitant]
     Dosage: UNK
  4. ACETYLSALICYLIC ACID [Concomitant]
     Dosage: UNK
  5. ZETIA [Concomitant]
     Dosage: UNK
  6. CARVEDILOL [Concomitant]
     Indication: HYPERTENSION
     Dosage: UNK
  7. ACTONEL [Concomitant]
     Dosage: 35 MG, 1X/DAY
  8. INSULIN [Concomitant]
     Dosage: 40 MG, UNK

REACTIONS (2)
  - DIZZINESS [None]
  - VISION BLURRED [None]
